APPROVED DRUG PRODUCT: MEGESTROL ACETATE
Active Ingredient: MEGESTROL ACETATE
Strength: 125MG/ML
Dosage Form/Route: SUSPENSION;ORAL
Application: A204688 | Product #001
Applicant: CHARTWELL LIFE MOLECULES LLC
Approved: Dec 1, 2017 | RLD: No | RS: No | Type: DISCN